FAERS Safety Report 25456354 (Version 1)
Quarter: 2025Q2

REPORT INFORMATION
  Report Type: Spontaneous
  Country: AT (occurrence: AT)
  Receive Date: 20250619
  Receipt Date: 20250619
  Transmission Date: 20250716
  Serious: Yes (Hospitalization)
  Sender: ROCHE
  Company Number: AT-ROCHE-10000312562

PATIENT
  Age: 75 Year
  Sex: Male

DRUGS (1)
  1. HEMLIBRA [Suspect]
     Active Substance: EMICIZUMAB-KXWH
     Indication: Factor VIII deficiency
     Route: 065
     Dates: start: 202307

REACTIONS (6)
  - Off label use [Unknown]
  - Arthropathy [Unknown]
  - Gastric haemorrhage [Unknown]
  - Bursa disorder [Unknown]
  - Epidural anaesthesia [Unknown]
  - Arthralgia [Unknown]
